FAERS Safety Report 8791054 (Version 1)
Quarter: 2012Q4

REPORT INFORMATION
  Report Type: Spontaneous
  Country: US (occurrence: None)
  Receive Date: 20120910
  Receipt Date: 20120910
  Transmission Date: 20130627
  Serious: Yes (Death)
  Sender: FDA-Public Use
  Company Number: DSA_59223_2012

PATIENT

DRUGS (5)
  1. FLUOROURACIL [Suspect]
     Indication: HEAD AND NECK CANCER
     Route: 042
  2. CISPLATIN [Suspect]
     Indication: HEAD AND NECK CANCER
     Route: 042
  3. THERAPEUTIC RADIOPHARMACEUTICALS [Suspect]
     Indication: HEAD AND NECK CANCER
     Dosage: (DF)
  4. ANTIEMETICS AND ANTINAUSEANTS (UNKNOWN) [Concomitant]
  5. I.V. SOLUTIONS (UNKNOWN) [Concomitant]

REACTIONS (1)
  - Pulmonary embolism [None]
